FAERS Safety Report 10005893 (Version 2)
Quarter: 2014Q1

REPORT INFORMATION
  Report Type: Spontaneous
  Country: BR (occurrence: BR)
  Receive Date: 20140313
  Receipt Date: 20140319
  Transmission Date: 20141002
  Serious: Yes (Hospitalization, Other)
  Sender: FDA-Public Use
  Company Number: BR-ELI_LILLY_AND_COMPANY-BR201403001295

PATIENT
  Sex: Male
  Weight: 85 kg

DRUGS (16)
  1. HUMALOG [Suspect]
     Indication: TYPE 2 DIABETES MELLITUS
     Dosage: 4 IU, UNKNOWN
     Route: 058
     Dates: start: 2006, end: 201311
  2. HUMALOG [Suspect]
     Dosage: UNK, UNKNOWN
     Route: 058
     Dates: start: 2013, end: 20140228
  3. HUMULIN R [Suspect]
     Indication: TYPE 2 DIABETES MELLITUS
     Dosage: UNK UNK, UNKNOWN
     Route: 065
     Dates: start: 201311
  4. NOVOLIN NPH [Suspect]
     Indication: TYPE 2 DIABETES MELLITUS
     Dosage: UNK, UNKNOWN
     Route: 065
     Dates: start: 201311
  5. NOVOLIN NPH [Suspect]
     Dosage: 13 IU, TID
     Route: 065
     Dates: start: 20140305
  6. NOVOLIN R [Concomitant]
     Indication: TYPE 2 DIABETES MELLITUS
     Dosage: 7 IU, TID
     Route: 065
     Dates: start: 20140305
  7. LANTUS [Concomitant]
     Indication: TYPE 2 DIABETES MELLITUS
     Dosage: UNK, UNKNOWN
     Route: 065
     Dates: start: 2013, end: 20140228
  8. MILGAMMA                           /01146701/ [Concomitant]
     Indication: DIABETIC NEUROPATHY
     Dosage: UNK, UNKNOWN
     Route: 065
  9. LYRICA [Concomitant]
     Indication: SPINAL PAIN
     Dosage: UNK, UNKNOWN
     Route: 065
  10. LYRICA [Concomitant]
     Indication: RELAXATION THERAPY
  11. ARADOIS [Concomitant]
     Indication: BLOOD PRESSURE
     Dosage: UNK, UNKNOWN
     Route: 065
  12. THIOCTACID                         /00213801/ [Concomitant]
     Indication: PRODUCT USED FOR UNKNOWN INDICATION
     Dosage: UNK, UNKNOWN
     Route: 065
  13. SINVASTATINA [Concomitant]
     Indication: BLOOD CHOLESTEROL
     Dosage: UNK, UNKNOWN
     Route: 065
  14. GABAPENTINA [Concomitant]
     Indication: SPINAL PAIN
     Dosage: UNK, UNKNOWN
     Route: 065
  15. GABAPENTINA [Concomitant]
     Indication: RELAXATION THERAPY
  16. FUROSEMIDA                         /00032601/ [Concomitant]
     Indication: OEDEMA PERIPHERAL
     Dosage: UNK, UNKNOWN
     Route: 065

REACTIONS (26)
  - Visual acuity reduced [Unknown]
  - Intervertebral disc protrusion [Unknown]
  - Fall [Unknown]
  - Diarrhoea [Recovered/Resolved]
  - Gastrooesophageal reflux disease [Recovering/Resolving]
  - Hypertension [Unknown]
  - Local swelling [Unknown]
  - Hypoglycaemia [Recovered/Resolved]
  - Drug hypersensitivity [Unknown]
  - Drug ineffective [Unknown]
  - Hyperglycaemia [Unknown]
  - Nail injury [Unknown]
  - Nail growth abnormal [Unknown]
  - Aphonia [Unknown]
  - Dysphonia [Unknown]
  - Blood glucose increased [Not Recovered/Not Resolved]
  - Therapeutic response delayed [Unknown]
  - Abdominal pain [Recovered/Resolved]
  - Pain in extremity [Unknown]
  - Angiopathy [Unknown]
  - Back pain [Unknown]
  - Burning sensation [Unknown]
  - Dengue fever [Unknown]
  - Hyperkeratosis [Unknown]
  - Induration [Unknown]
  - Gait disturbance [Not Recovered/Not Resolved]
